FAERS Safety Report 23849712 (Version 1)
Quarter: 2024Q2

REPORT INFORMATION
  Report Type: Spontaneous
  Country: US (occurrence: US)
  Receive Date: 20240513
  Receipt Date: 20240513
  Transmission Date: 20240715
  Serious: Yes (Life-Threatening, Hospitalization)
  Sender: FDA-Public Use
  Company Number: US-MYLANLABS-2024M1043185

PATIENT
  Age: 74 Year
  Sex: Male

DRUGS (1)
  1. AMLODIPINE [Suspect]
     Active Substance: AMLODIPINE BESYLATE
     Indication: Hypertension
     Dosage: 400 MILLIGRAM
     Route: 065

REACTIONS (4)
  - Intentional overdose [Recovered/Resolved]
  - Suicidal ideation [Unknown]
  - Hypotension [Recovered/Resolved]
  - Hyperglycaemia [Recovered/Resolved]
